FAERS Safety Report 4469325-8 (Version None)
Quarter: 2004Q4

REPORT INFORMATION
  Report Type: 
  Country: None (occurrence: None)
  Receive Date: 20041008
  Receipt Date: 20031208
  Transmission Date: 20050328
  Serious: No
  Sender: FDA-Public Use
  Company Number: US-BRISTOL-MYERS SQUIBB COMPANY-12453304

PATIENT
  Sex: Female

DRUGS (1)
  1. AVAPRO [Suspect]
     Indication: HYPERTENSION
     Route: 048
     Dates: end: 20031208

REACTIONS (3)
  - DYSGEUSIA [None]
  - DYSPEPSIA [None]
  - THROAT IRRITATION [None]
